FAERS Safety Report 6223500-0 (Version None)
Quarter: 2009Q2

REPORT INFORMATION
  Report Type: 
  Country: None (occurrence: None)
  Receive Date: 20090610
  Receipt Date: 20090527
  Transmission Date: 20091009
  Serious: Yes (Other)
  Sender: FDA-Public Use
  Company Number: 2008S1011828

PATIENT
  Age: 26 Year
  Sex: Female
  Weight: 83.0083 kg

DRUGS (6)
  1. AMNESTEEM [Suspect]
     Dosage: 40 MG; TWICE A DAY; ORAL
     Route: 048
     Dates: start: 20080428, end: 20080617
  2. ORAL CONTRACEPTIVE NOS (CON.) [Concomitant]
  3. ALBUTEROL (CON.) [Concomitant]
  4. ZOLPIDEM (CON.) [Concomitant]
  5. FLAGYL (CON.) [Concomitant]
  6. DIFLUCAN (CON.) [Concomitant]

REACTIONS (12)
  - ALOPECIA [None]
  - BLOOD PH DECREASED [None]
  - CANDIDIASIS [None]
  - DRUG DOSE OMISSION [None]
  - DRUG EXPOSURE DURING PREGNANCY [None]
  - DYSPNOEA [None]
  - INSOMNIA [None]
  - PREGNANCY [None]
  - TREATMENT NONCOMPLIANCE [None]
  - VAGINITIS BACTERIAL [None]
  - VOCAL CORD DISORDER [None]
  - VULVOVAGINAL CANDIDIASIS [None]
